FAERS Safety Report 14922146 (Version 1)
Quarter: 2018Q2

REPORT INFORMATION
  Report Type: Spontaneous
  Country: AU (occurrence: AU)
  Receive Date: 20180522
  Receipt Date: 20180522
  Transmission Date: 20180711
  Serious: Yes (Other)
  Sender: FDA-Public Use
  Company Number: AU-ASTRAZENECA-2018SE61757

PATIENT
  Sex: Male

DRUGS (2)
  1. SYMBICORT [Suspect]
     Active Substance: BUDESONIDE\FORMOTEROL FUMARATE DIHYDRATE
     Dosage: 200/6 1 PUFF TWICE A DAY
     Route: 055
     Dates: start: 201802, end: 201804
  2. SYMBICORT [Suspect]
     Active Substance: BUDESONIDE\FORMOTEROL FUMARATE DIHYDRATE
     Dosage: 200/6 1 PUFF TWICE A DAY
     Route: 055
     Dates: start: 20180502

REACTIONS (4)
  - Device issue [Unknown]
  - Drug dose omission [Unknown]
  - Wheezing [Not Recovered/Not Resolved]
  - Cough [Unknown]
